FAERS Safety Report 5276418-4 (Version None)
Quarter: 2007Q1

REPORT INFORMATION
  Report Type: 
  Country: None (occurrence: None)
  Receive Date: 20061213
  Receipt Date: 20030321
  Transmission Date: 20070707
  Serious: Yes (Other)
  Sender: FDA-Public Use
  Company Number: 2003UW11765

PATIENT
  Sex: Male

DRUGS (2)
  1. SEROQUEL [Suspect]
     Dosage: 100 MG PO
     Route: 048
  2. SERZONE [Suspect]

REACTIONS (5)
  - DIZZINESS [None]
  - HALLUCINATION [None]
  - LETHARGY [None]
  - MEDICATION ERROR [None]
  - MUSCULAR WEAKNESS [None]
